FAERS Safety Report 7443427-6 (Version None)
Quarter: 2011Q2

REPORT INFORMATION
  Report Type: 
  Country: None (occurrence: None)
  Receive Date: 20110428
  Receipt Date: 20110422
  Transmission Date: 20111010
  Serious: Yes (Hospitalization)
  Sender: FDA-Public Use
  Company Number: US-B.I. PHARMACEUTICALS,INC./RIDGEFIELD-2011-BP-10050BP

PATIENT
  Age: 84 Year
  Sex: Male

DRUGS (5)
  1. PRADAXA [Suspect]
     Indication: ATRIAL FIBRILLATION
     Dosage: 300 MG
     Dates: end: 20110330
  2. ZOCOR [Concomitant]
     Dosage: 40 MG
     Dates: start: 20100512
  3. COREG [Concomitant]
     Dosage: 25 MG
     Dates: start: 20100512
  4. ASPIRIN [Concomitant]
     Dosage: 325 MG
     Dates: start: 20100512
  5. PRILOSEC [Concomitant]
     Dosage: 20 MG
     Dates: start: 20100512

REACTIONS (4)
  - MELAENA [None]
  - UPPER GASTROINTESTINAL HAEMORRHAGE [None]
  - FATIGUE [None]
  - HAEMOGLOBIN DECREASED [None]
